FAERS Safety Report 4821093-3 (Version None)
Quarter: 2005Q4

REPORT INFORMATION
  Report Type: 
  Country: None (occurrence: None)
  Receive Date: 20051104
  Receipt Date: 20051028
  Transmission Date: 20060501
  Serious: Yes (Death)
  Sender: FDA-Public Use
  Company Number: NL-MERCK-0511USA00161B1

PATIENT

DRUGS (5)
  1. ELSPAR [Suspect]
     Indication: ACUTE LYMPHOCYTIC LEUKAEMIA
  2. PREDNISONE [Concomitant]
  3. VINCRISTINE SULFATE [Concomitant]
  4. DAUNORUBICIN [Concomitant]
  5. METHOTREXATE [Concomitant]

REACTIONS (5)
  - ABDOMINAL PAIN [None]
  - DRUG EXPOSURE DURING PREGNANCY [None]
  - HAEMORRHAGE [None]
  - PLATELET COUNT DECREASED [None]
  - STILLBIRTH [None]
